FAERS Safety Report 25084451 (Version 5)
Quarter: 2025Q4

REPORT INFORMATION
  Report Type: Report from Study
  Country: US (occurrence: US)
  Receive Date: 20250317
  Receipt Date: 20251105
  Transmission Date: 20260118
  Serious: No
  Sender: TAKEDA
  Company Number: US-TAKEDA-2025TUS025533

PATIENT
  Sex: Female
  Weight: 68 kg

DRUGS (27)
  1. HUMAN IMMUNOGLOBULIN G [Suspect]
     Active Substance: HUMAN IMMUNOGLOBULIN G
     Indication: Chronic inflammatory demyelinating polyradiculoneuropathy
     Dosage: 65 GRAM, Q4WEEKS
  2. HUMAN IMMUNOGLOBULIN G [Suspect]
     Active Substance: HUMAN IMMUNOGLOBULIN G
  3. ACETAMINOPHEN [Concomitant]
     Active Substance: ACETAMINOPHEN
     Dosage: UNK
  4. EPINEPHRINE [Concomitant]
     Active Substance: EPINEPHRINE
     Dosage: UNK
  5. SUNOSI [Concomitant]
     Active Substance: SOLRIAMFETOL
     Dosage: UNK
  6. MELATONIN [Concomitant]
     Active Substance: MELATONIN
     Dosage: UNK
  7. HEPARIN [Concomitant]
     Active Substance: HEPARIN SODIUM
     Dosage: UNK
  8. SODIUM CHLORIDE [Concomitant]
     Active Substance: SODIUM CHLORIDE
     Dosage: UNK
  9. GRANISETRON HYDROCHLORIDE [Concomitant]
     Active Substance: GRANISETRON HYDROCHLORIDE
     Dosage: UNK
  10. ORILISSA [Concomitant]
     Active Substance: ELAGOLIX SODIUM
     Dosage: UNK
  11. CITALOPRAM HYDROBROMIDE [Concomitant]
     Active Substance: CITALOPRAM HYDROBROMIDE
     Dosage: UNK
  12. KETOROLAC TROMETHAMINE [Concomitant]
     Active Substance: KETOROLAC TROMETHAMINE
     Dosage: UNK
  13. Armodafinilo [Concomitant]
     Dosage: UNK
  14. PREGABALIN [Concomitant]
     Active Substance: PREGABALIN
     Dosage: UNK
  15. CYCLOBENZAPRINE HYDROCHLORIDE [Concomitant]
     Active Substance: CYCLOBENZAPRINE HYDROCHLORIDE
     Dosage: UNK
  16. ACETAZOLAMIDE [Concomitant]
     Active Substance: ACETAZOLAMIDE
     Dosage: UNK
  17. DIPHENHYDRAMINE HYDROCHLORIDE [Concomitant]
     Active Substance: DIPHENHYDRAMINE HYDROCHLORIDE
     Dosage: UNK
  18. MIDODRINE HYDROCHLORIDE [Concomitant]
     Active Substance: MIDODRINE HYDROCHLORIDE
     Dosage: UNK
  19. TRAZODONE HCL [Concomitant]
     Active Substance: TRAZODONE HYDROCHLORIDE
     Dosage: UNK
  20. SODIUM CHLORIDE [Concomitant]
     Active Substance: SODIUM CHLORIDE
     Dosage: UNK
  21. ONDANSETRON HYDROCHLORIDE [Concomitant]
     Active Substance: ONDANSETRON HYDROCHLORIDE
     Dosage: UNK
  22. FLUBLOK [Concomitant]
     Active Substance: INFLUENZA VIRUS VACCINE
     Dosage: UNK
  23. DEXAMETHASONE [Concomitant]
     Active Substance: DEXAMETHASONE
     Dosage: UNK
  24. FLUDROCORTISONE ACETATE [Concomitant]
     Active Substance: FLUDROCORTISONE ACETATE
     Dosage: UNK
  25. MYFEMBREE [Concomitant]
     Active Substance: ESTRADIOL HEMIHYDRATE\NORETHINDRONE ACETATE\RELUGOLIX
     Dosage: UNK
  26. DIPHENHYDRAMINE [Concomitant]
     Active Substance: DIPHENHYDRAMINE
     Dosage: UNK
  27. DOXYCYCLINE HYCLATE [Concomitant]
     Active Substance: DOXYCYCLINE HYCLATE
     Dosage: UNK

REACTIONS (14)
  - Iodine allergy [Unknown]
  - Drug hypersensitivity [Unknown]
  - Inappropriate schedule of product administration [Unknown]
  - Incorrect drug administration rate [Unknown]
  - Ear infection [Unknown]
  - Device issue [Unknown]
  - Device occlusion [Unknown]
  - Vomiting [Unknown]
  - Migraine [Unknown]
  - Respiratory tract infection [Unknown]
  - Ear pain [Unknown]
  - Sinus congestion [Unknown]
  - Pyrexia [Unknown]
  - Cough [Unknown]
